FAERS Safety Report 17056996 (Version 1)
Quarter: 2019Q4

REPORT INFORMATION
  Report Type: Spontaneous
  Country: US (occurrence: US)
  Receive Date: 20191121
  Receipt Date: 20191121
  Transmission Date: 20200122
  Serious: Yes (Other)
  Sender: FDA-Public Use
  Company Number: US-ACS-001542

PATIENT
  Age: 46 Year
  Sex: Female

DRUGS (9)
  1. LIPITOR [Concomitant]
     Active Substance: ATORVASTATIN CALCIUM
     Route: 065
  2. CEFEPIME [Suspect]
     Active Substance: CEFEPIME HYDROCHLORIDE
     Indication: NECROTISING FASCIITIS
     Route: 042
     Dates: start: 20191007, end: 20191009
  3. PEPCID [Concomitant]
     Active Substance: FAMOTIDINE
     Route: 065
  4. AMLODIPINE [Concomitant]
     Active Substance: AMLODIPINE BESYLATE
     Route: 065
  5. ALBUMIN [Concomitant]
     Active Substance: ALBUMIN HUMAN
     Dosage: (AS NEEDED FOR DIALYSIS)
     Route: 065
  6. MINOXIDIL. [Concomitant]
     Active Substance: MINOXIDIL
     Route: 065
  7. HEPARIN [Concomitant]
     Active Substance: HEPARIN SODIUM
     Route: 058
  8. RENVELA [Concomitant]
     Active Substance: SEVELAMER CARBONATE
     Route: 065
  9. CEFEPIME [Suspect]
     Active Substance: CEFEPIME HYDROCHLORIDE
     Indication: NECROTISING FASCIITIS
     Route: 042
     Dates: start: 20191004, end: 20191007

REACTIONS (2)
  - Mental status changes [Recovered/Resolved]
  - Unresponsive to stimuli [Recovered/Resolved]

NARRATIVE: CASE EVENT DATE: 20191009
